FAERS Safety Report 15109054 (Version 2)
Quarter: 2018Q3

REPORT INFORMATION
  Report Type: Spontaneous
  Country: IT (occurrence: IT)
  Receive Date: 20180705
  Receipt Date: 20180709
  Transmission Date: 20181010
  Serious: Yes (Other)
  Sender: FDA-Public Use
  Company Number: IT-AUROBINDO-AUR-APL-2017-37849

PATIENT
  Age: 42 Year
  Sex: Female

DRUGS (3)
  1. PANACEF [Suspect]
     Active Substance: CEFACLOR
     Indication: PRODUCT USED FOR UNKNOWN INDICATION
     Dosage: POSITIVITY ONLY TO INTRADERMAL TEST AT 20 MG/ML
     Route: 023
  2. KEFORAL                            /00145501/ [Suspect]
     Active Substance: CEPHALEXIN
     Indication: PRODUCT USED FOR UNKNOWN INDICATION
     Dosage: POSITIVITY ONLY TO INTRADERMAL TEST AT 20 MG/ML
     Route: 023
  3. AMOXICILLIN. [Suspect]
     Active Substance: AMOXICILLIN
     Indication: PRODUCT USED FOR UNKNOWN INDICATION
     Dosage: UNK
     Route: 065

REACTIONS (3)
  - Acute generalised exanthematous pustulosis [Unknown]
  - Therapeutic product cross-reactivity [Unknown]
  - Type IV hypersensitivity reaction [Unknown]
